FAERS Safety Report 4507757-X (Version None)
Quarter: 2004Q4

REPORT INFORMATION
  Report Type: 
  Country: None (occurrence: None)
  Receive Date: 20041123
  Receipt Date: 20041117
  Transmission Date: 20050328
  Serious: Yes (Hospitalization)
  Sender: FDA-Public Use
  Company Number: 200421454GDDC

PATIENT
  Age: 37 Year
  Sex: Male

DRUGS (1)
  1. UNISOM [Suspect]
     Dosage: DOSE: 48 TABLETS

REACTIONS (5)
  - BLOOD CREATINE PHOSPHOKINASE INCREASED [None]
  - BLOOD LACTATE DEHYDROGENASE INCREASED [None]
  - BLOOD URINE PRESENT [None]
  - OVERDOSE [None]
  - SUICIDE ATTEMPT [None]
